FAERS Safety Report 5665215-3 (Version None)
Quarter: 2008Q1

REPORT INFORMATION
  Report Type: 
  Country: None (occurrence: None)
  Receive Date: 20080314
  Receipt Date: 20071205
  Transmission Date: 20080703
  Serious: No
  Sender: FDA-Public Use
  Company Number: US-ABBOTT-06P-163-0349917-00

PATIENT
  Sex: Female
  Weight: 56.296 kg

DRUGS (9)
  1. HUMIRA [Suspect]
     Indication: ANKYLOSING SPONDYLITIS
     Route: 058
     Dates: start: 20060701, end: 20060901
  2. HUMIRA [Suspect]
     Route: 058
     Dates: start: 20060901, end: 20061201
  3. HUMIRA [Suspect]
     Route: 058
     Dates: start: 20061201, end: 20070601
  4. HUMIRA [Suspect]
     Route: 058
     Dates: start: 20070801, end: 20071205
  5. HUMIRA [Suspect]
     Route: 058
     Dates: start: 20071205
  6. PANTOPRAZOLE SODIUM [Concomitant]
     Indication: DRUG USE FOR UNKNOWN INDICATION
  7. SERTRALINE HYDROCHLORIDE [Concomitant]
     Indication: DRUG USE FOR UNKNOWN INDICATION
  8. TRAMADOL HCL [Concomitant]
     Indication: DRUG USE FOR UNKNOWN INDICATION
  9. NAPROSYN [Concomitant]
     Indication: DRUG USE FOR UNKNOWN INDICATION

REACTIONS (1)
  - DRUG INEFFECTIVE [None]
